FAERS Safety Report 6648348-4 (Version None)
Quarter: 2010Q1

REPORT INFORMATION
  Report Type: 
  Country: None (occurrence: None)
  Receive Date: 20100319
  Receipt Date: 20100304
  Transmission Date: 20100710
  Serious: Yes (Hospitalization)
  Sender: FDA-Public Use
  Company Number: 2010000441

PATIENT
  Age: 67 Year
  Sex: Female

DRUGS (9)
  1. ERLOTINIB (ERLOTINIB) (TABLET) (ERLOTINIB) [Suspect]
     Indication: OVARIAN CANCER
     Dosage: 150 MG, ORAL
     Route: 048
     Dates: start: 20091216, end: 20100114
  2. BEVACIZUMAB [Suspect]
     Indication: OVARIAN CANCER
     Dosage: 15 MG/KG, 1X PER 21 DAYS, INTRAVENOUS
     Route: 042
     Dates: start: 20090902, end: 20100106
  3. ATIVAN [Concomitant]
  4. IBUPROFEN [Concomitant]
  5. KENALOG [Concomitant]
  6. LISINOPRIL [Concomitant]
  7. MACROBID [Concomitant]
  8. OXYCODONE HCL [Concomitant]
  9. PIMECROLIMUS [Concomitant]

REACTIONS (17)
  - ABDOMINAL PAIN [None]
  - ALANINE AMINOTRANSFERASE INCREASED [None]
  - ARTHRALGIA [None]
  - ASPARTATE AMINOTRANSFERASE INCREASED [None]
  - BLOOD ALKALINE PHOSPHATASE INCREASED [None]
  - DIARRHOEA [None]
  - FATIGUE [None]
  - HEPATITIS [None]
  - MALAISE [None]
  - MALIGNANT NEOPLASM PROGRESSION [None]
  - METASTASES TO SPINE [None]
  - MUSCULOSKELETAL PAIN [None]
  - NEURALGIA [None]
  - OVARIAN CANCER [None]
  - PAIN [None]
  - PAIN IN EXTREMITY [None]
  - STOMATITIS [None]
